FAERS Safety Report 9132511 (Version 1)
Quarter: 2013Q1

REPORT INFORMATION
  Report Type: Spontaneous
  Country: FR (occurrence: FR)
  Receive Date: 20130301
  Receipt Date: 20130301
  Transmission Date: 20140127
  Serious: Yes (Hospitalization)
  Sender: FDA-Public Use
  Company Number: FR-GLAXOSMITHKLINE-B0871068A

PATIENT
  Sex: Male

DRUGS (8)
  1. DEROXAT [Suspect]
     Indication: PRODUCT USED FOR UNKNOWN INDICATION
     Dosage: 20MG PER DAY
     Route: 048
     Dates: start: 201208, end: 20130118
  2. TEGRETOL LP [Concomitant]
     Dosage: 400MG TWICE PER DAY
     Route: 048
  3. CELECTOL [Concomitant]
     Dosage: 200MG TWICE PER DAY
     Route: 048
  4. LEXOMIL [Concomitant]
     Route: 048
  5. ZOLPIDEM [Concomitant]
     Route: 048
  6. FLUDEX LP [Concomitant]
     Dosage: 1.5MG PER DAY
     Route: 065
  7. KARDEGIC [Concomitant]
     Dosage: 300MG PER DAY
     Route: 065
     Dates: start: 201205
  8. TAHOR [Concomitant]
     Dosage: 40MG PER DAY
     Route: 065
     Dates: start: 201205

REACTIONS (5)
  - Myoclonus [Recovering/Resolving]
  - Dyskinesia [Recovering/Resolving]
  - Pain [Recovering/Resolving]
  - Gait disturbance [Recovering/Resolving]
  - Condition aggravated [Recovering/Resolving]
